FAERS Safety Report 24749137 (Version 2)
Quarter: 2024Q4

REPORT INFORMATION
  Report Type: Report from Study
  Country: US (occurrence: US)
  Receive Date: 20241218
  Receipt Date: 20241223
  Transmission Date: 20250115
  Serious: Yes (Other)
  Sender: MYLAN
  Company Number: US-MYLANLABS-2024M1112891

PATIENT
  Sex: Female

DRUGS (1)
  1. LYRICA [Suspect]
     Active Substance: PREGABALIN
     Indication: Muscle spasms
     Dosage: UNK
     Route: 065
     Dates: start: 20180401, end: 20180515

REACTIONS (3)
  - Suicidal ideation [Unknown]
  - Depression [Unknown]
  - Off label use [Unknown]
